FAERS Safety Report 8736711 (Version 2)
Quarter: 2012Q4

REPORT INFORMATION
  Report Type: 
  Country: US (occurrence: US)
  Receive Date: 20120822
  Receipt Date: 20120830
  Transmission Date: 20130627
  Serious: Yes (Other)
  Sender: FDA-Public Use
  Company Number: US-PFIZER INC-2012200130

PATIENT
  Age: 10 Year
  Sex: Male
  Weight: 33.11 kg

DRUGS (7)
  1. GENOTROPIN [Suspect]
     Indication: BODY HEIGHT BELOW NORMAL
     Dosage: 0.6 mg, daily
     Dates: start: 2011
  2. GENOTROPIN [Suspect]
     Dosage: 0.6 mg, daily
     Dates: start: 201203
  3. MIRALAX [Concomitant]
     Dosage: UNK
  4. CALCIUM [Concomitant]
     Indication: SUPPLEMENTATION THERAPY
     Dosage: UNK
  5. SELENIUM [Concomitant]
     Indication: SUPPLEMENTATION THERAPY
     Dosage: UNK
  6. MULTIVITAMINS [Concomitant]
     Indication: SUPPLEMENTATION THERAPY
     Dosage: UNK
  7. POTASSIUM CITRATE [Concomitant]
     Indication: SUPPLEMENTATION THERAPY
     Dosage: UNK

REACTIONS (1)
  - Hypothalamo-pituitary disorder [Unknown]
